FAERS Safety Report 7232323-5 (Version None)
Quarter: 2011Q1

REPORT INFORMATION
  Report Type: 
  Country: None (occurrence: None)
  Receive Date: 20110106
  Receipt Date: 20101220
  Transmission Date: 20110831
  Serious: Yes (Hospitalization)
  Sender: FDA-Public Use
  Company Number: 2010P1003468

PATIENT
  Age: 15 Year
  Sex: Female

DRUGS (3)
  1. CONTRAST MEDIA [Concomitant]
  2. ULTIVA [Suspect]
     Indication: ANAESTHESIA
     Dates: start: 20070101, end: 20070101
  3. SEVORANE LIQUID (SEVOFLURANE) (NO PREF. NAME) [Suspect]
     Indication: ANAESTHESIA
     Dosage: INH
     Dates: start: 20070101, end: 20070101

REACTIONS (2)
  - ALTERED STATE OF CONSCIOUSNESS [None]
  - APNOEA [None]
